FAERS Safety Report 17163611 (Version 1)
Quarter: 2019Q4

REPORT INFORMATION
  Report Type: Spontaneous
  Country: US (occurrence: US)
  Receive Date: 20191217
  Receipt Date: 20191217
  Transmission Date: 20200122
  Serious: Yes (Other)
  Sender: FDA-Public Use
  Company Number: US-AKORN PHARMACEUTICALS-2019AKN02480

PATIENT
  Age: 24 Year
  Sex: Female

DRUGS (9)
  1. MYORISAN [Suspect]
     Active Substance: ISOTRETINOIN
     Indication: ACNE
     Dosage: 30 MG, 2X/DAY(AVERAGE DAILY DOSE: 60 MG)
     Dates: start: 20190415, end: 2019
  2. CLARAVIS [Suspect]
     Active Substance: ISOTRETINOIN
     Dosage: 30 MG, 1X/DAY
     Dates: start: 201910, end: 20191104
  3. CLARAVIS [Suspect]
     Active Substance: ISOTRETINOIN
     Dosage: 30 MG, 1X/DAY
     Dates: start: 2019, end: 201905
  4. MYORISAN [Suspect]
     Active Substance: ISOTRETINOIN
     Dosage: 30 MG, 1X/DAY
     Dates: start: 2019, end: 201905
  5. MYORISAN [Suspect]
     Active Substance: ISOTRETINOIN
     Dosage: 30 MG, 2X/DAY(AVERAGE DAILY DOSE: 60 MG)
     Dates: start: 201910, end: 20191104
  6. MYORISAN [Suspect]
     Active Substance: ISOTRETINOIN
     Dosage: 30 MG, 1X/DAY
     Dates: start: 201910, end: 20191104
  7. CLARAVIS [Suspect]
     Active Substance: ISOTRETINOIN
     Indication: ACNE
     Dosage: 30 MG, 2X/DAY(AVERAGE DAILY DOSE: 60 MG)
     Dates: start: 20190417, end: 2019
  8. CLARAVIS [Suspect]
     Active Substance: ISOTRETINOIN
     Dosage: 30 MG, 2X/DAY (AVERAGE DAILY DOSE: 60 MG)
     Dates: start: 201910, end: 20191104
  9. BIRTH CONTROL PILLS (UNSPECIFIED) [Concomitant]
     Active Substance: UNSPECIFIED INGREDIENT

REACTIONS (2)
  - Exposure during pregnancy [Not Recovered/Not Resolved]
  - Treatment noncompliance [Recovered/Resolved]

NARRATIVE: CASE EVENT DATE: 2019
